FAERS Safety Report 12868162 (Version 2)
Quarter: 2017Q1

REPORT INFORMATION
  Report Type: Spontaneous
  Country: US (occurrence: US)
  Receive Date: 20161020
  Receipt Date: 20170124
  Transmission Date: 20170428
  Serious: No
  Sender: FDA-Public Use
  Company Number: US-AMGEN-USASP2016128951

PATIENT
  Age: 34 Year
  Sex: Female

DRUGS (2)
  1. REPATHA [Suspect]
     Active Substance: EVOLOCUMAB
     Indication: PLASMAPHERESIS
  2. REPATHA [Suspect]
     Active Substance: EVOLOCUMAB
     Indication: PANCREATITIS RELAPSING
     Dosage: 140 MG/ML, Q2WK
     Route: 065
     Dates: start: 20160712

REACTIONS (1)
  - Off label use [Unknown]

NARRATIVE: CASE EVENT DATE: 20160712
